FAERS Safety Report 22943070 (Version 2)
Quarter: 2024Q1

REPORT INFORMATION
  Report Type: Report from Study
  Country: CA (occurrence: CA)
  Receive Date: 20230914
  Receipt Date: 20240108
  Transmission Date: 20240410
  Serious: Yes (Other)
  Sender: FDA-Public Use
  Company Number: CA-SAMSUNG BIOEPIS-SB-2023-24578

PATIENT
  Sex: Male
  Weight: 72 kg

DRUGS (1)
  1. RENFLEXIS [Suspect]
     Active Substance: INFLIXIMAB-ABDA
     Indication: Crohn^s disease
     Dosage: INTRAVENOUS INFUSION
     Route: 042
     Dates: start: 20230710

REACTIONS (2)
  - Oropharyngeal pain [Recovered/Resolved]
  - Product use issue [Unknown]
